FAERS Safety Report 6272015-2 (Version None)
Quarter: 2009Q3

REPORT INFORMATION
  Report Type: 
  Country: None (occurrence: None)
  Receive Date: 20090717
  Receipt Date: 20090707
  Transmission Date: 20100115
  Serious: Yes (Hospitalization)
  Sender: FDA-Public Use
  Company Number: A0718705A

PATIENT
  Age: 64 Year
  Sex: Male
  Weight: 71.8 kg

DRUGS (9)
  1. AVANDIA [Suspect]
     Dosage: 4MG PER DAY
     Route: 048
     Dates: start: 20010101, end: 20070301
  2. HYZAAR [Concomitant]
  3. COLESTID [Concomitant]
  4. PLAVIX [Concomitant]
  5. TRICOR [Concomitant]
  6. AMLODIPINE [Concomitant]
  7. VIAGRA [Concomitant]
  8. ADVAIR HFA [Concomitant]
  9. ALBUTEROL [Concomitant]

REACTIONS (1)
  - MYOCARDIAL INFARCTION [None]
